FAERS Safety Report 6998604-5 (Version None)
Quarter: 2010Q3

REPORT INFORMATION
  Report Type: 
  Country: None (occurrence: None)
  Receive Date: 20100920
  Receipt Date: 20070611
  Transmission Date: 20110219
  Serious: Yes (Other)
  Sender: FDA-Public Use
  Company Number: US-ASTRAZENECA-2006UW24294

PATIENT
  Age: 16069 Day
  Sex: Female
  Weight: 82.1 kg

DRUGS (26)
  1. SEROQUEL [Suspect]
     Indication: INSOMNIA
     Route: 048
     Dates: start: 19990101
  2. SEROQUEL [Suspect]
     Indication: SLEEP DISORDER
     Route: 048
     Dates: start: 19990101
  3. SEROQUEL [Suspect]
     Indication: AFFECTIVE DISORDER
     Route: 048
     Dates: start: 19990101
  4. SEROQUEL [Suspect]
     Dosage: 25 MG TO 200 MG
     Route: 048
     Dates: start: 20020701
  5. SEROQUEL [Suspect]
     Dosage: 25 MG TO 200 MG
     Route: 048
     Dates: start: 20020701
  6. SEROQUEL [Suspect]
     Dosage: 25 MG TO 200 MG
     Route: 048
     Dates: start: 20020701
  7. ZYPREXA [Concomitant]
     Indication: AFFECTIVE DISORDER
  8. ZYPREXA [Concomitant]
     Indication: SLEEP DISORDER
  9. ZYPREXA [Concomitant]
     Dosage: 5 MG TO 10 MG
     Dates: start: 20010615
  10. ZYPREXA [Concomitant]
     Dosage: 5 MG TO 10 MG
     Dates: start: 20010615
  11. PAXIL [Concomitant]
     Indication: DEPRESSION
     Dosage: 20 MG TO 40 MG
     Route: 048
     Dates: start: 19981102
  12. PAXIL [Concomitant]
     Indication: ANXIETY
     Dosage: 20 MG TO 40 MG
     Route: 048
     Dates: start: 19981102
  13. METHADONE [Concomitant]
  14. ASPIRIN [Concomitant]
     Indication: HYPERTRIGLYCERIDAEMIA
     Dosage: 81 MG TO 325 MG
     Dates: start: 19981022
  15. COZAAR [Concomitant]
     Indication: CARDIAC DISORDER
     Dosage: 50 MG TO 500 MG
     Dates: start: 20010615
  16. COZAAR [Concomitant]
     Indication: HYPERTENSION
     Dosage: 50 MG TO 500 MG
     Dates: start: 20010615
  17. LANOXIN [Concomitant]
     Indication: CARDIAC DISORDER
     Dates: start: 19981022
  18. LASIX [Concomitant]
     Indication: HYPERTENSION
     Dosage: 40-80 MG
  19. LASIX [Concomitant]
     Indication: CARDIAC DISORDER
     Dosage: 40-80 MG
  20. TRICOR [Concomitant]
     Indication: BLOOD CHOLESTEROL INCREASED
     Dosage: 145 MG TO 200 MG
     Dates: start: 20011209
  21. ZETIA [Concomitant]
     Indication: BLOOD CHOLESTEROL INCREASED
     Dates: start: 20051020
  22. DIAZEPAM [Concomitant]
     Indication: PAIN IN JAW
     Route: 048
     Dates: start: 20051020
  23. ALLEGRA [Concomitant]
     Dates: start: 20010116
  24. HYDROXYZINE [Concomitant]
     Indication: PRURITUS
     Dates: start: 20051020
  25. LIPITOR [Concomitant]
     Dosage: 40 MG TO 60 MG
     Dates: start: 20010614
  26. STRATTERA [Concomitant]
     Indication: ATTENTION DEFICIT/HYPERACTIVITY DISORDER

REACTIONS (3)
  - DIABETES MELLITUS [None]
  - PANCREATITIS [None]
  - TYPE 1 DIABETES MELLITUS [None]
